FAERS Safety Report 7024489-7 (Version None)
Quarter: 2010Q4

REPORT INFORMATION
  Report Type: 
  Country: None (occurrence: None)
  Receive Date: 20101001
  Receipt Date: 20100924
  Transmission Date: 20110411
  Serious: Yes (Hospitalization)
  Sender: FDA-Public Use
  Company Number: A0836554A

PATIENT
  Age: 64 Year
  Sex: Male
  Weight: 119.5 kg

DRUGS (1)
  1. AVANDIA [Suspect]
     Route: 048
     Dates: start: 20030501, end: 20041001

REACTIONS (7)
  - ACUTE PULMONARY OEDEMA [None]
  - ANAEMIA [None]
  - CARDIAC FAILURE [None]
  - COMA [None]
  - CONDUCTION DISORDER [None]
  - MYOCARDIAL INFARCTION [None]
  - TRANSIENT ISCHAEMIC ATTACK [None]
